FAERS Safety Report 10076049 (Version 1)
Quarter: 2014Q2

REPORT INFORMATION
  Report Type: Spontaneous
  Country: ES (occurrence: ES)
  Receive Date: 20140414
  Receipt Date: 20140414
  Transmission Date: 20141212
  Serious: Yes (Hospitalization)
  Sender: FDA-Public Use
  Company Number: ES-009507513-1404ESP006721

PATIENT
  Age: 45 Year
  Sex: Male

DRUGS (8)
  1. RIBAVIRIN [Suspect]
     Indication: HEPATITIS C
     Dosage: 1000 MG, QD
     Route: 048
  2. PEGINTERFERON ALFA-2B [Suspect]
     Indication: HEPATITIS C
     Dosage: 100 MG, QW
     Route: 030
  3. RISPERIDONE [Concomitant]
     Indication: SCHIZOPHRENIA, PARANOID TYPE
     Dosage: 3 MG, UNK
  4. RISPERIDONE [Concomitant]
     Dosage: 1 MG, UNK
  5. RISPERIDONE [Concomitant]
     Dosage: 4 MG, UNK
  6. TELZIR [Concomitant]
     Indication: HIV INFECTION
     Dosage: 700 MG, Q12H
  7. NORVIR [Concomitant]
     Indication: HIV INFECTION
     Dosage: 100 MG, QD
  8. TRUVADA [Concomitant]
     Indication: HIV INFECTION
     Dosage: 1 DF, QD

REACTIONS (3)
  - Psychotic disorder [Recovered/Resolved]
  - Hallucination [Recovered/Resolved]
  - Malaise [Unknown]
